FAERS Safety Report 12822711 (Version 1)
Quarter: 2016Q4

REPORT INFORMATION
  Report Type: Spontaneous
  Country: US (occurrence: US)
  Receive Date: 20161006
  Receipt Date: 20161006
  Transmission Date: 20170207
  Serious: Yes (Hospitalization)
  Sender: FDA-Public Use
  Company Number: US-AMGEN-USASP2016127438

PATIENT
  Age: 70 Year
  Sex: Female

DRUGS (1)
  1. PROLIA [Suspect]
     Active Substance: DENOSUMAB
     Indication: OSTEOPOROSIS
     Dosage: 60 MG, Q6MO
     Route: 065
     Dates: start: 201601

REACTIONS (12)
  - Nausea [Unknown]
  - Back pain [Unknown]
  - Pain [Unknown]
  - Decreased appetite [Unknown]
  - Alopecia [Unknown]
  - Gastrointestinal pain [Unknown]
  - Fatigue [Unknown]
  - Musculoskeletal pain [Unknown]
  - Weight decreased [Unknown]
  - Activities of daily living impaired [Unknown]
  - Bone pain [Unknown]
  - Eating disorder [Unknown]
